FAERS Safety Report 9953515 (Version 3)
Quarter: 2014Q2

REPORT INFORMATION
  Report Type: Report from Study
  Country: AU (occurrence: AU)
  Receive Date: 20140304
  Receipt Date: 20140420
  Transmission Date: 20141212
  Serious: Yes (Hospitalization)
  Sender: FDA-Public Use
  Company Number: PHHY2014AU025804

PATIENT
  Age: 63 Year
  Sex: Male

DRUGS (1)
  1. CLOZARIL [Suspect]
     Dosage: 525 MG
     Dates: start: 19930603

REACTIONS (2)
  - Fall [Unknown]
  - Infection [Unknown]
